FAERS Safety Report 5106619-7 (Version None)
Quarter: 2006Q3

REPORT INFORMATION
  Report Type: 
  Country: None (occurrence: None)
  Receive Date: 20060918
  Receipt Date: 20060913
  Transmission Date: 20061208
  Serious: Yes (Death)
  Sender: FDA-Public Use
  Company Number: PHBS2006SE13858

PATIENT
  Age: 37 Year

DRUGS (3)
  1. SANDIMMUNE [Suspect]
     Route: 065
  2. CYMEVENE [Suspect]
  3. VFEND [Suspect]

REACTIONS (1)
  - RENAL FAILURE [None]
